FAERS Safety Report 10097291 (Version 2)
Quarter: 2014Q2

REPORT INFORMATION
  Report Type: Spontaneous
  Country: DE (occurrence: DE)
  Receive Date: 20140422
  Receipt Date: 20140515
  Transmission Date: 20141212
  Serious: Yes (Hospitalization, Other)
  Sender: FDA-Public Use
  Company Number: DE-ROCHE-1385743

PATIENT
  Age: 21 Year
  Sex: Female
  Weight: 67 kg

DRUGS (3)
  1. ROACTEMRA [Suspect]
     Indication: VASCULITIS
     Route: 042
     Dates: start: 20140210, end: 20140210
  2. PREDNISOLONE [Concomitant]
     Indication: VASCULITIS
     Route: 048
     Dates: start: 2009
  3. METHOTREXATE [Concomitant]
     Indication: VASCULITIS
     Route: 058
     Dates: start: 20131115

REACTIONS (4)
  - Cutaneous vasculitis [Recovered/Resolved]
  - Colitis [Unknown]
  - Selective IgA immunodeficiency [Unknown]
  - Arthritis [Recovered/Resolved]
